FAERS Safety Report 7723541-8 (Version None)
Quarter: 2011Q3

REPORT INFORMATION
  Report Type: 
  Country: None (occurrence: None)
  Receive Date: 20110901
  Receipt Date: 20110722
  Transmission Date: 20111222
  Serious: Yes (Life-Threatening, Hospitalization)
  Sender: FDA-Public Use
  Company Number: GB-AMGEN-GBRCT2011037359

PATIENT
  Age: 67 Year
  Sex: Male

DRUGS (2)
  1. BLINDED DARBEPOETIN ALFA [Suspect]
     Indication: CARDIAC FAILURE
     Dosage: UNK UNK, QMO
     Route: 058
     Dates: start: 20100423
  2. BLINDED PLACEBO [Suspect]
     Indication: CARDIAC FAILURE
     Dosage: UNK UNK, QMO
     Route: 058
     Dates: start: 20100423

REACTIONS (7)
  - DYSPNOEA [None]
  - CARDIAC FAILURE CONGESTIVE [None]
  - RESPIRATORY FAILURE [None]
  - MUSCULAR WEAKNESS [None]
  - LOWER RESPIRATORY TRACT INFECTION [None]
  - SEPSIS [None]
  - DYSARTHRIA [None]
